FAERS Safety Report 19897604 (Version 1)
Quarter: 2021Q3

REPORT INFORMATION
  Report Type: Spontaneous
  Country: CA (occurrence: CA)
  Receive Date: 20210930
  Receipt Date: 20210930
  Transmission Date: 20211014
  Serious: Yes (Hospitalization)
  Sender: FDA-Public Use
  Company Number: CA-SA-2021SA318676

PATIENT
  Age: 71 Year
  Sex: Male

DRUGS (7)
  1. RANITIDINE HYDROCHLORIDE. [Suspect]
     Active Substance: RANITIDINE HYDROCHLORIDE
     Dosage: UNK
  2. SALBUTAMOL SULFATE [Suspect]
     Active Substance: ALBUTEROL SULFATE
  3. ALVESCO [Suspect]
     Active Substance: CICLESONIDE
  4. BUDESONIDE/FORMOTEROL FUMARATE [Suspect]
     Active Substance: BUDESONIDE\FORMOTEROL FUMARATE
  5. MEPOLIZUMAB [Suspect]
     Active Substance: MEPOLIZUMAB
  6. SINGULAIR [Suspect]
     Active Substance: MONTELUKAST SODIUM
  7. DEXILANT [Suspect]
     Active Substance: DEXLANSOPRAZOLE

REACTIONS (5)
  - Oesophageal polyp [Unknown]
  - Hospitalisation [Unknown]
  - Therapeutic product effect incomplete [Unknown]
  - Airway remodelling [Unknown]
  - Asthma [Unknown]
